FAERS Safety Report 7558778-4 (Version None)
Quarter: 2011Q2

REPORT INFORMATION
  Report Type: 
  Country: None (occurrence: None)
  Receive Date: 20110621
  Receipt Date: 20110615
  Transmission Date: 20111010
  Serious: No
  Sender: FDA-Public Use
  Company Number: US-BIOGENIDEC-2011BI022167

PATIENT
  Age: 58 Year
  Sex: Male

DRUGS (2)
  1. TYSABRI [Suspect]
     Indication: MULTIPLE SCLEROSIS
     Route: 042
     Dates: start: 20050131, end: 20050131
  2. TYSABRI [Suspect]
     Route: 042
     Dates: start: 20090713, end: 20100203

REACTIONS (2)
  - GAIT DISTURBANCE [None]
  - MUSCLE SPASMS [None]
